FAERS Safety Report 4805706-8 (Version None)
Quarter: 2005Q4

REPORT INFORMATION
  Report Type: 
  Country: None (occurrence: None)
  Receive Date: 20051021
  Receipt Date: 20050923
  Transmission Date: 20060501
  Serious: Yes (Hospitalization)
  Sender: FDA-Public Use
  Company Number: JP-ROCHE-418655

PATIENT
  Age: 72 Year
  Sex: Male

DRUGS (10)
  1. PANALDINE [Suspect]
     Indication: ACUTE MYOCARDIAL INFARCTION
     Route: 048
     Dates: start: 20050630, end: 20050815
  2. ASPIRIN [Concomitant]
     Indication: ACUTE MYOCARDIAL INFARCTION
     Route: 048
     Dates: start: 20050630, end: 20050815
  3. NU-LOTAN [Concomitant]
     Indication: HYPERTENSION
     Route: 048
     Dates: start: 20050630, end: 20050825
  4. ISOSORBIDE MONONITRATE [Concomitant]
     Indication: ACUTE MYOCARDIAL INFARCTION
     Route: 048
     Dates: start: 20050630, end: 20050815
  5. SIGMART [Concomitant]
     Route: 048
     Dates: end: 20050815
  6. BASEN [Concomitant]
     Indication: DIABETES MELLITUS
     Dosage: 0.2MG T.I.D. UNTIL 5 JULY, 2005, 0.3MG T.I.D. THEREAFTER.
     Route: 048
     Dates: start: 20050630, end: 20050815
  7. GASTER [Concomitant]
     Indication: GASTRITIS
     Route: 048
     Dates: start: 20050630, end: 20050825
  8. GLIMICRON [Concomitant]
     Indication: DIABETES MELLITUS
     Route: 048
     Dates: start: 20050630, end: 20050705
  9. NORVASC [Concomitant]
     Indication: HYPERTENSION
     Route: 048
     Dates: start: 20050630
  10. NICORANDIL [Concomitant]
     Indication: ACUTE MYOCARDIAL INFARCTION
     Route: 048
     Dates: start: 20050630, end: 20050815

REACTIONS (4)
  - HEPATIC FUNCTION ABNORMAL [None]
  - HEPATITIS CHOLESTATIC [None]
  - JAUNDICE [None]
  - PRURITUS GENERALISED [None]
